FAERS Safety Report 9267968 (Version 2)
Quarter: 2013Q3

REPORT INFORMATION
  Report Type: Report from Study
  Country: US (occurrence: US)
  Receive Date: 20130502
  Receipt Date: 20130717
  Transmission Date: 20140515
  Serious: Yes (Hospitalization)
  Sender: FDA-Public Use
  Company Number: US-ALEXION PHARMACEUTICALS INC.-A201201325

PATIENT
  Age: 24 Year
  Sex: Female
  Weight: 97.2 kg

DRUGS (22)
  1. ECULIZUMAB [Suspect]
     Indication: HAEMOLYTIC URAEMIC SYNDROME
     Dosage: 1200 MG
     Route: 042
     Dates: start: 201110
  2. PREDNISONE [Concomitant]
     Dosage: 10 MG, BID
  3. DIOVAN [Concomitant]
     Dosage: 160 MG, BID
  4. SODIUM BICARBONATE [Concomitant]
     Dosage: 1300 MG, TID
  5. CLONIDINE [Concomitant]
     Dosage: 0.3 MG, Q 8 HRS
  6. DILTIAZEM CD [Concomitant]
     Dosage: 360 MG, QD
  7. LORAZEPAM [Concomitant]
     Indication: ANXIETY
     Dosage: 0.5 MG, TID
  8. CITALOPRAM [Concomitant]
     Dosage: 30 MG, QD
  9. PHENERGAN [Concomitant]
     Indication: NAUSEA
     Dosage: UNK, PRN
  10. REGLAN [Concomitant]
     Dosage: 10 MG, QID
     Route: 048
  11. FLUCONAZOLE [Concomitant]
     Dosage: 100 MG, QD
  12. VALCYTE [Concomitant]
     Dosage: 450 MG, QD
     Route: 048
  13. AMBIEN [Concomitant]
     Dosage: 10 MG, NIGHTLY
  14. COREG [Concomitant]
     Dosage: 25 MG, Q 12 HRS
  15. NORVASC [Concomitant]
     Dosage: 5 MG, QD
  16. AZATHIOPRINE [Concomitant]
     Dosage: 50 MG, QD
  17. TACROLIMUS [Concomitant]
     Dosage: 3 MG, BID
  18. CINACALCET [Concomitant]
     Dosage: 20 MG, BID
  19. OMEPRAZOLE [Concomitant]
     Dosage: 20 MG, BID
     Route: 048
  20. CIPRO [Concomitant]
     Dosage: 500 MG, Q 12 HRS
  21. MINOXIDIL [Concomitant]
     Dosage: 2.5 MG, TID
  22. VITAMIN D [Concomitant]
     Dosage: 50000 IU, QW

REACTIONS (4)
  - Hepatic enzyme abnormal [Recovered/Resolved]
  - Gastroenteritis [Not Recovered/Not Resolved]
  - Dehydration [Unknown]
  - Blood pressure increased [Unknown]
